FAERS Safety Report 18547787 (Version 1)
Quarter: 2020Q4

REPORT INFORMATION
  Report Type: Spontaneous
  Country: NP (occurrence: NP)
  Receive Date: 20201126
  Receipt Date: 20201126
  Transmission Date: 20210114
  Serious: Yes (Hospitalization, Other)
  Sender: FDA-Public Use
  Company Number: NP-LUPIN PHARMACEUTICALS INC.-2020-09259

PATIENT
  Age: 50 Year
  Sex: Female

DRUGS (4)
  1. METFORMIN [Concomitant]
     Active Substance: METFORMIN HYDROCHLORIDE
     Indication: DIABETES MELLITUS
     Dosage: UNK, SINCE PAST 4 YEARS
     Route: 065
  2. SULFAMETHOXAZOLE AND TRIMETHOPRIM [Suspect]
     Active Substance: SULFAMETHOXAZOLE\TRIMETHOPRIM
     Indication: PNEUMONIA
     Dosage: UNK
     Route: 065
  3. LINAGLIPTIN [Concomitant]
     Active Substance: LINAGLIPTIN
     Indication: DIABETES MELLITUS
     Dosage: UNK, SINCE PAST 4 YEARS
     Route: 065
  4. LOSARTAN. [Concomitant]
     Active Substance: LOSARTAN
     Indication: HYPERTENSION
     Dosage: UNK, SINCE PAST 2 YEARS
     Route: 065

REACTIONS (4)
  - Stevens-Johnson syndrome [Recovering/Resolving]
  - Leukopenia [Recovering/Resolving]
  - Renal impairment [Recovering/Resolving]
  - Normochromic normocytic anaemia [Recovering/Resolving]
